FAERS Safety Report 15561067 (Version 3)
Quarter: 2018Q4

REPORT INFORMATION
  Report Type: Spontaneous
  Country: US (occurrence: US)
  Receive Date: 20181029
  Receipt Date: 20181106
  Transmission Date: 20190205
  Serious: No
  Sender: FDA-Public Use
  Company Number: US-PFIZER INC-2018440021

PATIENT
  Sex: Female

DRUGS (4)
  1. XANAX XR [Suspect]
     Active Substance: ALPRAZOLAM
     Dosage: 1 MG, DAILY (IT IN THE MORNING)
     Dates: start: 201801
  2. XANAX XR [Suspect]
     Active Substance: ALPRAZOLAM
     Indication: TREMOR
     Dosage: UNK
  3. XANAX [Suspect]
     Active Substance: ALPRAZOLAM
     Dosage: 0.5 MG, AS NEEDED (FOR FILL IN, FOR BREAKTHROUGH)
  4. XANAX [Suspect]
     Active Substance: ALPRAZOLAM
     Dosage: 0.5 MG, 3X/DAY

REACTIONS (9)
  - Intentional product misuse [Unknown]
  - Feeling jittery [Unknown]
  - Feeling abnormal [Unknown]
  - Product complaint [Unknown]
  - Diarrhoea [Unknown]
  - Nervousness [Unknown]
  - Product residue present [Unknown]
  - Drug ineffective [Unknown]
  - Product colour issue [Unknown]

NARRATIVE: CASE EVENT DATE: 201810
